FAERS Safety Report 8599381 (Version 6)
Quarter: 2016Q2

REPORT INFORMATION
  Report Type: Spontaneous
  Country: FR (occurrence: FR)
  Receive Date: 20120605
  Receipt Date: 20160505
  Transmission Date: 20160815
  Serious: Yes (Other)
  Sender: FDA-Public Use
  Company Number: FR-GLAXOSMITHKLINE-B0804970A

PATIENT
  Age: 62 Year
  Sex: Female

DRUGS (9)
  1. CREON [Concomitant]
     Active Substance: PANCRELIPASE AMYLASE\PANCRELIPASE LIPASE\PANCRELIPASE PROTEASE
     Route: 048
  2. KARDEGIC [Concomitant]
     Active Substance: ASPIRIN LYSINE
  3. CRESTOR [Concomitant]
     Active Substance: ROSUVASTATIN CALCIUM
  4. JANUVIA [Concomitant]
     Active Substance: SITAGLIPTIN PHOSPHATE
     Route: 048
  5. AVANDAMET [Suspect]
     Active Substance: METFORMIN HYDROCHLORIDE\ROSIGLITAZONE MALEATE
     Indication: DIABETES MELLITUS
     Dosage: 8 MG, QD
     Route: 048
     Dates: start: 2004, end: 2006
  6. NOVONORM [Concomitant]
     Active Substance: REPAGLINIDE
     Route: 048
  7. RILMENIDINE [Concomitant]
     Active Substance: RILMENIDINE
     Dates: start: 20100908
  8. AVANDAMET [Suspect]
     Active Substance: METFORMIN HYDROCHLORIDE\ROSIGLITAZONE MALEATE
     Dosage: 4 MG, QD
     Dates: start: 2006, end: 201010
  9. RAMIPRIL. [Concomitant]
     Active Substance: RAMIPRIL

REACTIONS (22)
  - Tendon pain [Not Recovered/Not Resolved]
  - Cardiac disorder [Not Recovered/Not Resolved]
  - Hypoaesthesia [Recovered/Resolved]
  - Carotid arteriosclerosis [Not Recovered/Not Resolved]
  - Myalgia [Recovering/Resolving]
  - Muscle spasms [Recovered/Resolved]
  - Weight increased [Recovering/Resolving]
  - Abdominal pain upper [Recovered/Resolved]
  - Burning sensation [Recovered/Resolved]
  - Hyporeflexia [Recovered/Resolved]
  - Ventricular hyperkinesia [Not Recovered/Not Resolved]
  - Headache [Unknown]
  - Gait disturbance [Not Recovered/Not Resolved]
  - Respiratory disorder [Not Recovered/Not Resolved]
  - Asthenia [Not Recovered/Not Resolved]
  - General physical health deterioration [Not Recovered/Not Resolved]
  - Aortic valve incompetence [Not Recovered/Not Resolved]
  - Gastrooesophageal reflux disease [Recovering/Resolving]
  - Gastrointestinal disorder [Recovered/Resolved]
  - Dyspnoea [Unknown]
  - Blindness [Recovered/Resolved]
  - Paraesthesia [Not Recovered/Not Resolved]

NARRATIVE: CASE EVENT DATE: 2008
